FAERS Safety Report 23534301 (Version 1)
Quarter: 2024Q1

REPORT INFORMATION
  Report Type: Spontaneous
  Country: US (occurrence: US)
  Receive Date: 20240217
  Receipt Date: 20240217
  Transmission Date: 20240409
  Serious: No
  Sender: FDA-Public Use
  Company Number: US-ABBVIE-5640395

PATIENT
  Sex: Female

DRUGS (1)
  1. LATISSE [Suspect]
     Active Substance: BIMATOPROST
     Indication: Product used for unknown indication
     Dosage: 5ML, ?STRENGTH: BIMATOPROST 0.3MG/ML SOL
     Route: 047

REACTIONS (2)
  - Off label use [Unknown]
  - Wrong technique in product usage process [Unknown]
